FAERS Safety Report 17889478 (Version 1)
Quarter: 2020Q2

REPORT INFORMATION
  Report Type: Spontaneous
  Country: CO (occurrence: CO)
  Receive Date: 20200612
  Receipt Date: 20200612
  Transmission Date: 20200714
  Serious: Yes (Death)
  Sender: FDA-Public Use
  Company Number: CO-PFIZER INC-2020036315

PATIENT
  Age: 52 Year
  Sex: Female

DRUGS (1)
  1. REAMPLA [Suspect]
     Active Substance: PALBOCICLIB
     Indication: BREAST CANCER METASTATIC
     Dosage: 100 MG, CYCLIC (21 DAYS AND REST 8 DAYS)
     Route: 048
     Dates: start: 20191223

REACTIONS (2)
  - Decreased immune responsiveness [Unknown]
  - Death [Fatal]

NARRATIVE: CASE EVENT DATE: 20200419
